FAERS Safety Report 11302658 (Version 1)
Quarter: 2015Q3

REPORT INFORMATION
  Report Type: Spontaneous
  Country: US (occurrence: None)
  Receive Date: 20150723
  Receipt Date: 20150723
  Transmission Date: 20151125
  Serious: Yes (Disabling)
  Sender: FDA-Public Use
  Company Number: None

PATIENT
  Age: 49 Year
  Sex: Male
  Weight: 90.72 kg

DRUGS (5)
  1. PROPECIA [Suspect]
     Active Substance: FINASTERIDE
     Indication: ALOPECIA
     Dosage: 1DAILY, ONCE DAILY, TAKEN BY MOUTH
     Route: 048
  2. PANAX GINSENG [Concomitant]
     Active Substance: ASIAN GINSENG
  3. MECCA ROOT [Concomitant]
  4. L-ARGININE [Concomitant]
     Active Substance: ARGININE
  5. PYCNOGENOL [Concomitant]
     Active Substance: DIETARY SUPPLEMENT

REACTIONS (2)
  - Erectile dysfunction [None]
  - Libido decreased [None]

NARRATIVE: CASE EVENT DATE: 20091229
